FAERS Safety Report 20568597 (Version 1)
Quarter: 2022Q1

REPORT INFORMATION
  Report Type: Spontaneous
  Country: GB (occurrence: GB)
  Receive Date: 20220308
  Receipt Date: 20220308
  Transmission Date: 20220423
  Serious: Yes (Life-Threatening, Hospitalization, Other)
  Sender: FDA-Public Use
  Company Number: None

PATIENT
  Age: 12 Year
  Sex: Male

DRUGS (7)
  1. DICLOFENAC SODIUM [Suspect]
     Active Substance: DICLOFENAC SODIUM
     Indication: Pain
     Dosage: UNK
     Route: 065
  2. ACETAMINOPHEN [Suspect]
     Active Substance: ACETAMINOPHEN
     Indication: Abdominal pain
     Dosage: 50 MG, QD
     Route: 042
  3. MORPHINE [Suspect]
     Active Substance: MORPHINE
     Indication: Pain
     Dosage: DOSE: PATIENT-CONTROLLED ANALGESIA
     Route: 016
  4. ACETAMINOPHEN [Suspect]
     Active Substance: ACETAMINOPHEN
     Indication: Pain
     Dosage: 53 MG/KG, QD
     Route: 042
  5. ACETAMINOPHEN [Suspect]
     Active Substance: ACETAMINOPHEN
     Indication: Pain
     Dosage: 65 MG, QD
     Route: 042
  6. MORPHINE [Suspect]
     Active Substance: MORPHINE
     Indication: Pain
     Dosage: UNK (DOSE PATIENT-CONTROLLED ANALGESIA)
     Route: 037
  7. MORPHINE [Suspect]
     Active Substance: MORPHINE
     Indication: Pain
     Dosage: UNK
     Route: 042

REACTIONS (13)
  - Abdominal pain [Recovering/Resolving]
  - Pallor [Recovering/Resolving]
  - Pain [Recovering/Resolving]
  - Drug ineffective [Recovered/Resolved]
  - Pallor [Recovering/Resolving]
  - Pain [Recovering/Resolving]
  - Lethargy [Unknown]
  - Hypovolaemia [Not Recovered/Not Resolved]
  - Rectal haemorrhage [Recovering/Resolving]
  - Condition aggravated [Unknown]
  - Malaise [Unknown]
  - Colitis ulcerative [Recovering/Resolving]
  - Megacolon [Recovered/Resolved]

NARRATIVE: CASE EVENT DATE: 20070101
